FAERS Safety Report 5591222-5 (Version None)
Quarter: 2008Q1

REPORT INFORMATION
  Report Type: 
  Country: None (occurrence: None)
  Receive Date: 20080115
  Receipt Date: 20070904
  Transmission Date: 20080703
  Serious: No
  Sender: FDA-Public Use
  Company Number: US-ABBOTT-07P-163-0416061-00

PATIENT
  Sex: Male

DRUGS (2)
  1. TERAZOSIN TABLETS (HYTRIN) [Suspect]
     Indication: HYPERTENSION
     Route: 048
     Dates: start: 20070801, end: 20070820
  2. TERAZOSIN TABLETS (HYTRIN) [Suspect]
     Route: 048
     Dates: start: 20070903

REACTIONS (2)
  - VISION BLURRED [None]
  - VISUAL DISTURBANCE [None]
